FAERS Safety Report 8135148-1 (Version None)
Quarter: 2012Q1

REPORT INFORMATION
  Report Type: 
  Country: None (occurrence: None)
  Receive Date: 20120214
  Receipt Date: 20120209
  Transmission Date: 20120608
  Serious: No
  Sender: FDA-Public Use
  Company Number: US-PFIZER INC-2012036417

PATIENT
  Sex: Female
  Weight: 63.5 kg

DRUGS (6)
  1. LYRICA [Suspect]
     Dosage: 150 MG, 1X/DAY
     Route: 048
     Dates: start: 20070101
  2. AMBIEN [Concomitant]
     Dosage: UNK
  3. ELAVIL [Concomitant]
     Dosage: UNK
  4. LYRICA [Suspect]
     Indication: FIBROMYALGIA
     Dosage: 75MG CAPSULE IN THE MORNING AND TWO 75MG CAPSULES IN THE EVENING
     Route: 048
     Dates: start: 20070101, end: 20070101
  5. FLEXERIL [Concomitant]
     Dosage: UNK, AS NEEDED
  6. LEVOTHYROXINE [Concomitant]
     Indication: HYPOTHYROIDISM
     Dosage: UNK

REACTIONS (5)
  - DRUG INEFFECTIVE [None]
  - HYPERPHAGIA [None]
  - MALAISE [None]
  - WEIGHT INCREASED [None]
  - FATIGUE [None]
